FAERS Safety Report 6398419-5 (Version None)
Quarter: 2009Q4

REPORT INFORMATION
  Report Type: 
  Country: None (occurrence: None)
  Receive Date: 20091007
  Receipt Date: 20090930
  Transmission Date: 20100525
  Serious: Yes (Other)
  Sender: FDA-Public Use
  Company Number: ACO_00606_2009

PATIENT
  Sex: Female

DRUGS (13)
  1. TIZANIDINE HCL [Suspect]
     Indication: DRUG USE FOR UNKNOWN INDICATION
     Dosage: (2 MG, PER DAY)
     Dates: start: 20090401, end: 20090401
  2. DEANXIT (FLUPENTIXOL, MELITRACEN) [Suspect]
     Indication: DRUG USE FOR UNKNOWN INDICATION
     Dosage: (30 MG, PER DAY)
  3. BENERVA (THIAMINE  HYDROCHLORIDE) [Suspect]
     Indication: DRUG USE FOR UNKNOWN INDICATION
     Dosage: (DF)
  4. OMEPRAZOLE [Suspect]
     Indication: DRUG USE FOR UNKNOWN INDICATION
     Dosage: (40 MG, PER DAY)
  5. FERRUM HAUSMANN (FERROUS FUMARATE, IRON) [Suspect]
     Indication: DRUG USE FOR UNKNOWN INDICATION
     Dosage: (100 MG, PER DAY)
  6. CALCIMAGON-D3 (CALCIUM CARBONATE, COLECALCIFEROL) [Suspect]
     Indication: DRUG USE FOR UNKNOWN INDICATION
     Dosage: (500 MG, PER DAY)
  7. XANAX [Suspect]
     Indication: DRUG USE FOR UNKNOWN INDICATION
     Dosage: (0.25 MG, PER DAY)
  8. MYDOCALM (TOLPERISONE HYDROCHLORIDE) [Suspect]
     Indication: DRUG USE FOR UNKNOWN INDICATION
     Dosage: (DF)
     Dates: end: 20090401
  9. HALDOL [Suspect]
     Indication: DRUG USE FOR UNKNOWN INDICATION
     Dosage: (2 MG, PER DAY)
     Dates: end: 20090401
  10. AULIN (NIMESULIDE ) [Suspect]
     Indication: DRUG USE FOR UNKNOWN INDICATION
     Dosage: (100 MG, PER DAY)
     Dates: end: 20090401
  11. TILUR (ACEMETACIN) [Suspect]
     Indication: DRUG USE FOR UNKNOWN INDICATION
     Dosage: (90 MG, PER DAY)
     Dates: end: 20090401
  12. ACETAMINOPHEN [Suspect]
     Indication: DRUG USE FOR UNKNOWN INDICATION
     Dosage: (DF PER DAY)
     Dates: end: 20090401
  13. RHEUMON (ETOFENAMATE) [Suspect]
     Indication: DRUG USE FOR UNKNOWN INDICATION
     Dosage: (10 MG, PER DAY)
     Dates: end: 20090401

REACTIONS (3)
  - ABORTION INDUCED [None]
  - DRUG EXPOSURE DURING PREGNANCY [None]
  - PREGNANCY [None]
